FAERS Safety Report 20039942 (Version 1)
Quarter: 2021Q4

REPORT INFORMATION
  Report Type: Spontaneous
  Country: IT (occurrence: IT)
  Receive Date: 20211106
  Receipt Date: 20211106
  Transmission Date: 20220304
  Serious: Yes (Congenital Anomaly)
  Sender: FDA-Public Use
  Company Number: IT-NOVARTISPH-NVSC2021IT252916

PATIENT

DRUGS (2)
  1. HYRIMOZ [Suspect]
     Active Substance: ADALIMUMAB-ADAZ
     Indication: Foetal exposure during pregnancy
     Dosage: MATERNAL DOSE: 40 MG, 1 CYCLIC
     Route: 064
     Dates: start: 20200410, end: 20201127
  2. ADALIMUMAB [Concomitant]
     Active Substance: ADALIMUMAB
     Indication: Foetal exposure during pregnancy
     Dosage: MATERNAL DOSE: 40 MG, 1 CYCLIC
     Route: 064

REACTIONS (2)
  - Hydrocephalus [Unknown]
  - Scoliosis [Unknown]

NARRATIVE: CASE EVENT DATE: 20201216
